FAERS Safety Report 7448103-1 (Version None)
Quarter: 2011Q2

REPORT INFORMATION
  Report Type: 
  Country: None (occurrence: None)
  Receive Date: 20110429
  Receipt Date: 20100510
  Transmission Date: 20111010
  Serious: No
  Sender: FDA-Public Use
  Company Number: US-ASTRAZENECA-2007UW18552

PATIENT
  Age: 72 Year
  Sex: Female
  Weight: 71.7 kg

DRUGS (19)
  1. COZAAR [Concomitant]
  2. XANAX [Concomitant]
  3. LOMOTIL [Concomitant]
  4. MDI [Concomitant]
  5. GLYBURIDE [Concomitant]
  6. ALBUTEROL [Concomitant]
  7. METOPROLOL SUCCINATE [Concomitant]
  8. TRAZODONE HCL [Concomitant]
  9. NEXIUM [Suspect]
     Indication: ULCER
     Route: 048
     Dates: start: 20070101
  10. PRAVASTATIN [Concomitant]
  11. LEVOTHYROXINE SODIUM [Concomitant]
  12. NEXIUM [Suspect]
     Route: 048
     Dates: start: 20070401
  13. CRESTOR [Suspect]
     Route: 048
  14. METFORMIN [Concomitant]
  15. PRILOSEC [Suspect]
     Route: 048
  16. FLUOXETINE [Concomitant]
  17. NEXIUM [Suspect]
     Route: 048
  18. LOPERAMIDE [Concomitant]
  19. ASPIRIN [Concomitant]

REACTIONS (3)
  - DIARRHOEA [None]
  - ABDOMINAL DISCOMFORT [None]
  - COLITIS ULCERATIVE [None]
